FAERS Safety Report 4900753-X (Version None)
Quarter: 2006Q1

REPORT INFORMATION
  Report Type: 
  Country: None (occurrence: None)
  Receive Date: 20060201
  Receipt Date: 20051110
  Transmission Date: 20060701
  Serious: Yes (Hospitalization)
  Sender: FDA-Public Use
  Company Number: 2005P1000515

PATIENT
  Age: 62 Year
  Sex: Male
  Weight: 72 kg

DRUGS (8)
  1. RETEPLASE (RETEPLASE) [Suspect]
     Indication: ACUTE MYOCARDIAL INFARCTION
     Dosage: IV
     Route: 042
     Dates: start: 20050601, end: 20050601
  2. ABCIXIMAB (ABCIXIMAB) [Suspect]
     Indication: ACUTE MYOCARDIAL INFARCTION
     Dosage: IV
     Route: 042
     Dates: start: 20050601, end: 20050601
  3. ASPIRIN [Concomitant]
  4. CLOPIDOGREL BISULFATE [Concomitant]
  5. ATORVASTATIN CALCIUM [Concomitant]
  6. PERINDOPRIL [Concomitant]
  7. BISOPROLOL [Concomitant]
  8. ALL OTHER THERAPEUTIC COMPANY [Concomitant]

REACTIONS (2)
  - CORONARY OSTIAL STENOSIS [None]
  - PAIN IN JAW [None]
